FAERS Safety Report 15257196 (Version 1)
Quarter: 2018Q3

REPORT INFORMATION
  Report Type: Spontaneous
  Country: US (occurrence: US)
  Receive Date: 20180808
  Receipt Date: 20180808
  Transmission Date: 20181010
  Serious: No
  Sender: FDA-Public Use
  Company Number: US-GALDERMA-US18023553

PATIENT
  Age: 19 Year
  Sex: Female

DRUGS (1)
  1. PROACTIV MD DAILY OIL CONTROL SPF 30 [Suspect]
     Active Substance: AVOBENZONE\OCTISALATE\OCTOCRYLENE
     Indication: ACNE
     Route: 061
     Dates: start: 20180221, end: 20180307

REACTIONS (3)
  - Skin burning sensation [Recovering/Resolving]
  - Rash [Recovering/Resolving]
  - Skin irritation [Recovering/Resolving]

NARRATIVE: CASE EVENT DATE: 20180302
